FAERS Safety Report 4683915-9 (Version None)
Quarter: 2005Q2

REPORT INFORMATION
  Report Type: 
  Country: None (occurrence: None)
  Receive Date: 20050607
  Receipt Date: 20050602
  Transmission Date: 20051028
  Serious: Yes (Hospitalization)
  Sender: FDA-Public Use
  Company Number: PHBS2005SE07834

PATIENT
  Age: 72 Year
  Sex: Female

DRUGS (4)
  1. GLEEVEC [Suspect]
     Indication: CHRONIC MYELOID LEUKAEMIA
     Dosage: 400 MG/DAY
     Route: 048
     Dates: start: 20041124, end: 20041225
  2. METOPROLOL SUCCINATE [Concomitant]
  3. COZAAR [Concomitant]
  4. NORMORIX [Concomitant]

REACTIONS (6)
  - NAUSEA [None]
  - NEUTROPENIA [None]
  - OCULAR HYPERAEMIA [None]
  - OESOPHAGEAL ULCER [None]
  - PYREXIA [None]
  - VOMITING [None]
